FAERS Safety Report 7311863-4 (Version None)
Quarter: 2011Q1

REPORT INFORMATION
  Report Type: 
  Country: None (occurrence: None)
  Receive Date: 20110224
  Receipt Date: 20110214
  Transmission Date: 20110831
  Serious: Yes (Other)
  Sender: FDA-Public Use
  Company Number: US-JNJFOC-20100603633

PATIENT
  Sex: Female
  Weight: 53.52 kg

DRUGS (11)
  1. ZOCOR [Concomitant]
     Indication: BLOOD CHOLESTEROL
  2. KLONOPIN [Concomitant]
     Indication: ANXIETY
  3. STELARA [Suspect]
     Dosage: WEEK 16
     Route: 058
  4. ALBUTEROL [Concomitant]
     Indication: ASTHMA
  5. NEURONTIN [Concomitant]
     Indication: RESTLESS LEGS SYNDROME
  6. STELARA [Suspect]
     Indication: PSORIASIS
     Dosage: WEEK 0
     Route: 058
  7. DOXEPIN [Concomitant]
     Indication: DEPRESSION
  8. PSORALEN PLUS ULTRAVIOLET LIGHT THERAPY [Suspect]
     Indication: PSORIASIS
  9. STELARA [Suspect]
     Dosage: WEEK 4
     Route: 058
  10. ESTRADIOL [Concomitant]
     Indication: HORMONE REPLACEMENT THERAPY
  11. CELEXA [Concomitant]
     Indication: DEPRESSION

REACTIONS (4)
  - THERMAL BURN [None]
  - BLISTER [None]
  - PSORIASIS [None]
  - SKIN EXFOLIATION [None]
